FAERS Safety Report 7951642-8 (Version None)
Quarter: 2011Q4

REPORT INFORMATION
  Report Type: 
  Country: None (occurrence: None)
  Receive Date: 20111201
  Receipt Date: 20111116
  Transmission Date: 20120403
  Serious: Yes (Hospitalization)
  Sender: FDA-Public Use
  Company Number: US-UCBSA-045725

PATIENT
  Age: 39 Year
  Sex: Female
  Weight: 46.4 kg

DRUGS (21)
  1. IMURAN [Concomitant]
     Dosage: EVERY EVENING;
     Route: 048
     Dates: start: 20060113
  2. IMURAN [Concomitant]
     Route: 048
  3. LEXAPRO [Concomitant]
     Indication: DEPRESSION
     Dosage: EVERY EVENING
     Route: 048
     Dates: start: 20050515
  4. TEMOVATE [Concomitant]
     Indication: ECZEMA
     Route: 061
     Dates: start: 20111001
  5. IMURAN [Concomitant]
     Route: 048
     Dates: start: 20080113
  6. PRILOSEC [Concomitant]
     Indication: GASTROOESOPHAGEAL REFLUX DISEASE
     Dosage: EVERY MORNING
     Route: 048
     Dates: start: 20080904
  7. PLAVIX [Concomitant]
     Indication: HYPERTENSION
     Route: 048
     Dates: start: 20100110
  8. ZOFRAN [Concomitant]
     Indication: NAUSEA
     Dosage: 4 MG ONCE IN 6 HOURS
     Dates: start: 20111107, end: 20111109
  9. IMURAN [Concomitant]
     Indication: CROHN'S DISEASE
     Dosage: HALF TABLET 25 MG
  10. VITAMIN B-12 [Concomitant]
     Indication: VITAMIN B12 DEFICIENCY
     Route: 030
     Dates: start: 20101028
  11. NOSEBLEED QR [Concomitant]
     Indication: EPISTAXIS
     Route: 061
     Dates: start: 20110729
  12. CERTOLIZUMAB PEGOL [Suspect]
     Indication: CROHN'S DISEASE
     Route: 058
     Dates: start: 20040923
  13. ZOCOR [Concomitant]
     Indication: RAYNAUD'S PHENOMENON
     Dosage: AT BEDTIME
     Route: 048
     Dates: start: 20081017
  14. PRINIVIL [Concomitant]
     Indication: HYPERTENSION
     Route: 048
     Dates: start: 20061213
  15. TRACLEER [Concomitant]
     Indication: HYPERTENSION
     Route: 048
     Dates: start: 20100806
  16. ENTOCORT EC [Concomitant]
     Route: 048
     Dates: start: 20110203
  17. REVATIO [Concomitant]
     Indication: HYPERTENSION
     Route: 048
     Dates: start: 20091030, end: 20111107
  18. ATIVAN [Concomitant]
     Indication: ANXIETY
     Dosage: AT BEDTIME
     Route: 048
     Dates: start: 20041202
  19. TRACLEER [Concomitant]
     Route: 048
     Dates: start: 20110324
  20. ENTOCORT EC [Concomitant]
     Indication: CROHN'S DISEASE
     Route: 054
  21. ZOFRAN [Concomitant]
     Indication: VOMITING
     Dosage: 4 MG ONCE IN 6 HOURS
     Dates: start: 20111107, end: 20111109

REACTIONS (1)
  - RAYNAUD'S PHENOMENON [None]
